FAERS Safety Report 4269835-2 (Version None)
Quarter: 2004Q1

REPORT INFORMATION
  Report Type: 
  Country: None (occurrence: None)
  Receive Date: 20040112
  Receipt Date: 20031230
  Transmission Date: 20041129
  Serious: Yes (Hospitalization)
  Sender: FDA-Public Use
  Company Number: US-JNJFOC-20040100325

PATIENT
  Age: 41 Year
  Sex: Female

DRUGS (11)
  1. INFLIXIMAB (INFLIXIMAB, RECOMBINANT) LYOPHILIZED POWDER [Suspect]
     Indication: RHEUMATOID ARTHRITIS
     Dosage: INTRAVENOUS
     Route: 042
     Dates: start: 20021010
  2. PREDNISONE [Concomitant]
  3. AMITRIPTYLINE HCL [Concomitant]
  4. ASPIRIN 9ACETYLSALICYLIC ACID) [Concomitant]
  5. LIPITOR [Concomitant]
  6. OMEPRAZOLE [Concomitant]
  7. TOPROL-XL [Concomitant]
  8. UNITHROID (NOVOTHYRAL) [Concomitant]
  9. EFFEXOR [Concomitant]
  10. FERROUS GLUCONATE (FERROUS GLUCONATE) [Concomitant]
  11. DARVOCET [Concomitant]

REACTIONS (4)
  - CORONARY ARTERY DISEASE [None]
  - MYOCARDIAL INFARCTION [None]
  - PNEUMONIA [None]
  - POST PROCEDURAL COMPLICATION [None]
